FAERS Safety Report 4337191-7 (Version None)
Quarter: 2004Q2

REPORT INFORMATION
  Report Type: 
  Country: None (occurrence: None)
  Receive Date: 20040407
  Receipt Date: 20040322
  Transmission Date: 20050107
  Serious: Yes (Hospitalization)
  Sender: FDA-Public Use
  Company Number: M04-INT-045

PATIENT
  Age: 79 Year
  Sex: Male

DRUGS (4)
  1. INTEGRILIN [Suspect]
     Indication: PERIPHERAL ARTERY ANGIOPLASTY
     Dosage: 180 MCG/KG X2: INTRAVENOUS BOLUS
     Route: 040
  2. ASPIRIN [Suspect]
     Indication: PERIPHERAL ARTERY ANGIOPLASTY
     Dosage: 325 MG, QD: ORAL
     Route: 048
  3. CLOPIDROGREL BISULFATE [Suspect]
     Indication: PERIPHERAL ARTERY ANGIOPLASTY
     Dosage: 75 MG QD-BID: ORAL
     Route: 048
  4. HEPARIN [Suspect]
     Indication: PERIPHERAL ARTERY ANGIOPLASTY
     Dosage: 30 UNITS/KG: INTRAVENOUS (NOT OTHERWISE SPECIFIED)
     Route: 042

REACTIONS (1)
  - MOVEMENT DISORDER [None]
